FAERS Safety Report 5694887-2 (Version None)
Quarter: 2008Q2

REPORT INFORMATION
  Report Type: 
  Country: None (occurrence: None)
  Receive Date: 20080404
  Receipt Date: 20080325
  Transmission Date: 20081010
  Serious: Yes (Other)
  Sender: FDA-Public Use
  Company Number: PHHY2008CA03896

PATIENT
  Age: 69 Year
  Sex: Male

DRUGS (2)
  1. GLEEVEC [Suspect]
     Indication: GASTROINTESTINAL STROMAL TUMOUR
     Dosage: 300 MG /DAY
     Route: 048
     Dates: start: 20071001, end: 20080301
  2. GLEEVEC [Suspect]
     Dosage: 400 MG
     Route: 048
     Dates: start: 20070601, end: 20071001

REACTIONS (2)
  - ABDOMINAL PAIN [None]
  - ENTEROCOLITIS HAEMORRHAGIC [None]
